FAERS Safety Report 6775293-6 (Version None)
Quarter: 2010Q2

REPORT INFORMATION
  Report Type: 
  Country: None (occurrence: None)
  Receive Date: 20100615
  Receipt Date: 20100615
  Transmission Date: 20101027
  Serious: Yes (Life-Threatening, Hospitalization)
  Sender: FDA-Public Use
  Company Number: None

PATIENT
  Sex: Male
  Weight: 86.1834 kg

DRUGS (1)
  1. DILAUDID [Suspect]
     Indication: ABDOMINAL PAIN UPPER
     Dosage: ONCE
     Dates: start: 20100608

REACTIONS (5)
  - APHASIA [None]
  - BRAIN INJURY [None]
  - COMA [None]
  - CONVULSION [None]
  - MYOCARDIAL INFARCTION [None]
